FAERS Safety Report 17450682 (Version 1)
Quarter: 2020Q1

REPORT INFORMATION
  Report Type: Spontaneous
  Country: US (occurrence: US)
  Receive Date: 20200222
  Receipt Date: 20200222
  Transmission Date: 20200409
  Serious: No
  Sender: FDA-Public Use
  Company Number: None

PATIENT
  Age: 37 Year
  Sex: Female
  Weight: 50.4 kg

DRUGS (1)
  1. ZYRTEC [Suspect]
     Active Substance: CETIRIZINE HYDROCHLORIDE
     Indication: HYPERSENSITIVITY
     Dosage: ?          QUANTITY:1 TABLET(S);?
     Route: 048
     Dates: start: 20151204, end: 20160927

REACTIONS (5)
  - Drug dependence [None]
  - Withdrawal syndrome [None]
  - Pruritus [None]
  - Insomnia [None]
  - Disturbance in attention [None]

NARRATIVE: CASE EVENT DATE: 20151204
